FAERS Safety Report 7726818-5 (Version None)
Quarter: 2011Q3

REPORT INFORMATION
  Report Type: 
  Country: None (occurrence: None)
  Receive Date: 20110902
  Receipt Date: 20110825
  Transmission Date: 20111222
  Serious: Yes (Hospitalization)
  Sender: FDA-Public Use
  Company Number: FR-GLAXOSMITHKLINE-B0742068A

PATIENT
  Sex: Male

DRUGS (4)
  1. DROPERIDOL [Suspect]
     Indication: NAUSEA
     Dosage: 1.25MG PER DAY
     Route: 042
     Dates: start: 20110529
  2. ZOFRAN [Suspect]
     Indication: NAUSEA
     Dosage: 4MG PER DAY
     Route: 042
     Dates: start: 20110529
  3. AMITRIPTYLINE HCL [Suspect]
     Indication: NEURALGIA
     Dosage: 5DROP TWICE PER DAY
     Route: 048
     Dates: start: 20110529
  4. OXYCONTIN [Suspect]
     Indication: NEURALGIA
     Dosage: 5MG PER DAY
     Route: 048
     Dates: start: 20110529

REACTIONS (5)
  - VERTIGO [None]
  - TACHYPNOEA [None]
  - ASTHENIA [None]
  - PARAESTHESIA [None]
  - HYPERHIDROSIS [None]
